FAERS Safety Report 6852559-2 (Version None)
Quarter: 2010Q3

REPORT INFORMATION
  Report Type: 
  Country: None (occurrence: None)
  Receive Date: 20100717
  Receipt Date: 20071218
  Transmission Date: 20110219
  Serious: Yes (Other)
  Sender: FDA-Public Use
  Company Number: US-PFIZER INC-2007095958

PATIENT
  Sex: Female
  Weight: 78.181 kg

DRUGS (2)
  1. CHANTIX [Suspect]
     Indication: SMOKING CESSATION THERAPY
     Dates: start: 20070907, end: 20071102
  2. VITAMINS [Concomitant]

REACTIONS (8)
  - AGITATION [None]
  - DEPRESSION [None]
  - DRUG PRESCRIBING ERROR [None]
  - HALLUCINATION [None]
  - INSOMNIA [None]
  - MOOD SWINGS [None]
  - NERVOUSNESS [None]
  - SUICIDAL IDEATION [None]
